FAERS Safety Report 7761052-4 (Version None)
Quarter: 2011Q3

REPORT INFORMATION
  Report Type: 
  Country: None (occurrence: None)
  Receive Date: 20110920
  Receipt Date: 20110908
  Transmission Date: 20111222
  Serious: Yes (Other)
  Sender: FDA-Public Use
  Company Number: US-BAYER-2011-007506

PATIENT
  Age: 21 Year
  Sex: Female
  Weight: 145.13 kg

DRUGS (4)
  1. YAZ [Suspect]
     Indication: MENORRHAGIA
     Dosage: UNK
     Dates: start: 20060731, end: 20100101
  2. YAZ [Suspect]
     Indication: MENSTRUATION IRREGULAR
  3. AMOXICILLIN [Concomitant]
  4. IBUPROFEN [Concomitant]
     Dosage: UNK UNK, PRN

REACTIONS (3)
  - CHOLECYSTITIS CHRONIC [None]
  - CHOLELITHIASIS [None]
  - PAIN [None]
